FAERS Safety Report 6464598-4 (Version None)
Quarter: 2009Q4

REPORT INFORMATION
  Report Type: 
  Country: None (occurrence: None)
  Receive Date: 20091201
  Receipt Date: 20091120
  Transmission Date: 20100525
  Serious: Yes (Death, Hospitalization)
  Sender: FDA-Public Use
  Company Number: JP-MERCK-0909USA00053

PATIENT
  Age: 73 Year
  Sex: Female
  Weight: 36 kg

DRUGS (8)
  1. STROMECTOL [Suspect]
     Indication: ACARODERMATITIS
     Route: 048
     Dates: start: 20090801, end: 20090801
  2. ZINC OXIDE SIMPLE OINTMENT [Concomitant]
     Indication: ACARODERMATITIS
     Route: 061
     Dates: start: 20090731
  3. TIAPRIDE HYDROCHLORIDE [Concomitant]
     Indication: DEPRESSION
     Route: 048
  4. LINTON (HALOPERIDOL) [Concomitant]
     Indication: DEMENTIA
     Route: 048
  5. AKINETON TABLETS [Concomitant]
     Indication: DEMENTIA
     Route: 048
  6. BENZALIN [Concomitant]
     Indication: DEMENTIA
     Route: 048
  7. SALICYLIC ACID [Concomitant]
     Indication: ACARODERMATITIS
     Route: 061
  8. CALVISKEN [Concomitant]
     Indication: HYPERTENSION
     Route: 048

REACTIONS (2)
  - PNEUMONIA ASPIRATION [None]
  - RESPIRATORY FAILURE [None]
